FAERS Safety Report 4837918-1 (Version None)
Quarter: 2005Q4

REPORT INFORMATION
  Report Type: 
  Country: None (occurrence: None)
  Receive Date: 20051123
  Receipt Date: 20051110
  Transmission Date: 20060501
  Serious: Yes (Life-Threatening, Hospitalization)
  Sender: FDA-Public Use
  Company Number: 2005137733

PATIENT
  Age: 81 Year
  Sex: Female
  Weight: 58.4 kg

DRUGS (3)
  1. SULPERAZON (SULBACTAM, CEFOPERAZONE) [Suspect]
     Indication: CHOLANGITIS ACUTE
     Dosage: 1 GRAM (1 IN 1 TOTAL), INTRAVENOUS)
     Route: 042
     Dates: start: 20050908, end: 20050919
  2. POTACOL-R (CALCIUM CHLORIDE) [Concomitant]
  3. MALTOSE, POTASSIUM CHLORIDE, SODIUM CHLORIDE, SODIUM LACTATE) [Concomitant]

REACTIONS (1)
  - ANAPHYLACTIC SHOCK [None]
